FAERS Safety Report 14855832 (Version 2)
Quarter: 2019Q2

REPORT INFORMATION
  Report Type: Spontaneous
  Country: US (occurrence: US)
  Receive Date: 20180507
  Receipt Date: 20190515
  Transmission Date: 20190711
  Serious: Yes (Hospitalization, Other)
  Sender: FDA-Public Use
  Company Number: US-PFIZER INC-2018181181

PATIENT
  Age: 72 Year
  Sex: Male
  Weight: 90.72 kg

DRUGS (7)
  1. SERTRALINE HCL [Suspect]
     Active Substance: SERTRALINE HYDROCHLORIDE
     Dosage: 25 MG, DAILY
     Route: 048
     Dates: start: 2016
  2. LIPITOR [Concomitant]
     Active Substance: ATORVASTATIN CALCIUM
     Dosage: 80 MG, 1X/DAY
     Route: 048
     Dates: start: 2005
  3. SERTRALINE HCL [Suspect]
     Active Substance: SERTRALINE HYDROCHLORIDE
     Indication: MOOD ALTERED
     Dosage: 50 MG, DAILY ^JUST ONE^
     Route: 048
     Dates: start: 2015
  4. PANTOPRAZOLE [Concomitant]
     Active Substance: PANTOPRAZOLE
     Indication: ABDOMINAL PAIN UPPER
     Dosage: 40 MG, DAILY
  5. ASPIRIN [ACETYLSALICYLIC ACID] [Concomitant]
     Active Substance: ASPIRIN
     Dosage: UNK (1/4)
  6. WARFARIN [Concomitant]
     Active Substance: WARFARIN
     Indication: THROMBOSIS
     Dosage: 60 MG, 1X/DAY [PER DAY]
  7. TAMSULOSIN [Concomitant]
     Active Substance: TAMSULOSIN
     Indication: URINE FLOW DECREASED
     Dosage: 0.4 MG, 1X/DAY [EVERY OTHER DAY]

REACTIONS (3)
  - Palpitations [Not Recovered/Not Resolved]
  - Atrial fibrillation [Not Recovered/Not Resolved]
  - Sleep apnoea syndrome [Not Recovered/Not Resolved]

NARRATIVE: CASE EVENT DATE: 201706
